FAERS Safety Report 7306522-8 (Version None)
Quarter: 2011Q1

REPORT INFORMATION
  Report Type: 
  Country: None (occurrence: None)
  Receive Date: 20110222
  Receipt Date: 20110207
  Transmission Date: 20110831
  Serious: Yes (Hospitalization, Other)
  Sender: FDA-Public Use
  Company Number: AU-GENENTECH-292822

PATIENT
  Sex: Male

DRUGS (1)
  1. LUCENTIS [Suspect]
     Indication: MACULAR DEGENERATION
     Dosage: UNK
     Route: 031
     Dates: start: 20080825, end: 20090921

REACTIONS (6)
  - MACULOPATHY [None]
  - VISION BLURRED [None]
  - VITRECTOMY [None]
  - EYE INFECTION [None]
  - BLINDNESS [None]
  - VISUAL IMPAIRMENT [None]
